FAERS Safety Report 8324549-4 (Version None)
Quarter: 2012Q2

REPORT INFORMATION
  Report Type: 
  Country: None (occurrence: None)
  Receive Date: 20120501
  Receipt Date: 20120420
  Transmission Date: 20120825
  Serious: Yes (Life-Threatening, Hospitalization)
  Sender: FDA-Public Use
  Company Number: ES-VERTEX PHARMACEUTICALS INC.-000000000000000459

PATIENT
  Sex: Female
  Weight: 65 kg

DRUGS (4)
  1. PEG-INTERFERON [Concomitant]
     Indication: HEPATITIS C
     Route: 065
     Dates: start: 20120126, end: 20120329
  2. RIBAVIRIN [Concomitant]
     Indication: HEPATITIS C
     Route: 048
     Dates: start: 20120126, end: 20120402
  3. NORFLOXACIN [Concomitant]
     Indication: PRODUCT USED FOR UNKNOWN INDICATION
  4. TELAPREVIR [Suspect]
     Indication: HEPATITIS C
     Dosage: DOSAGE FORM: TABLET
     Route: 048
     Dates: start: 20120126, end: 20120402

REACTIONS (5)
  - APLASIA [None]
  - EPISTAXIS [None]
  - PANCYTOPENIA [None]
  - ANXIETY [None]
  - RASH [None]
